FAERS Safety Report 5011255-7 (Version None)
Quarter: 2006Q2

REPORT INFORMATION
  Report Type: 
  Country: None (occurrence: None)
  Receive Date: 20060523
  Receipt Date: 20060515
  Transmission Date: 20061013
  Serious: Yes (Life-Threatening, Hospitalization)
  Sender: FDA-Public Use
  Company Number: 235998K05USA

PATIENT
  Age: 36 Year
  Sex: Female
  Weight: 53.5 kg

DRUGS (6)
  1. REBIF [Suspect]
     Indication: MULTIPLE SCLEROSIS
     Dosage: 44 MCG, 3 IN 1 WEEKS, SUBCUTANEOUS
     Route: 058
     Dates: start: 20020601, end: 20050701
  2. TOPAMAX [Suspect]
     Dosage: 100 MG, 2 IN 1 DAYS, ORAL
     Route: 048
     Dates: start: 20021101, end: 20050701
  3. XANAX [Suspect]
  4. CITALOPRAM HYDROBROMIDE [Suspect]
     Dosage: 30 MG, 1 IN 1 DAYS, ORAL
     Route: 048
     Dates: start: 20020101
  5. BACLOFEN [Concomitant]
  6. WELLBUTRIN [Concomitant]

REACTIONS (5)
  - HALLUCINATION, AUDITORY [None]
  - LOSS OF CONSCIOUSNESS [None]
  - MAJOR DEPRESSION [None]
  - MULTIPLE DRUG OVERDOSE [None]
  - SOMNOLENCE [None]
